FAERS Safety Report 6059686-0 (Version None)
Quarter: 2009Q1

REPORT INFORMATION
  Report Type: 
  Country: None (occurrence: None)
  Receive Date: 20090130
  Receipt Date: 20090119
  Transmission Date: 20090719
  Serious: Yes (Other)
  Sender: FDA-Public Use
  Company Number: US-PFIZER INC-2009158585

PATIENT

DRUGS (4)
  1. BEXTRA [Suspect]
     Indication: ARTHRALGIA
     Dosage: 20 MG, 1X/DAY
     Dates: start: 20030101
  2. BEXTRA [Suspect]
     Dosage: UNK
  3. CLEOCIN [Suspect]
     Indication: VAGINAL INFECTION
     Dosage: UNK
     Dates: start: 20090109, end: 20090109
  4. MIRALAX [Suspect]
     Dosage: UNK
     Dates: start: 20080101

REACTIONS (1)
  - DERMATITIS EXFOLIATIVE [None]
